FAERS Safety Report 9915294 (Version 1)
Quarter: 2014Q1

REPORT INFORMATION
  Report Type: Spontaneous
  Country: CA (occurrence: CA)
  Receive Date: 20140221
  Receipt Date: 20140221
  Transmission Date: 20141002
  Serious: Yes (Other)
  Sender: FDA-Public Use
  Company Number: CA-ROCHE-1353778

PATIENT
  Age: 49 Year
  Sex: Male

DRUGS (6)
  1. XOLAIR [Suspect]
     Indication: ASTHMA
     Route: 058
     Dates: start: 20131125
  2. XOLAIR [Suspect]
     Route: 058
     Dates: start: 20140120
  3. SINGULAIR [Concomitant]
  4. ADVAIR [Concomitant]
  5. SPIRIVA [Concomitant]
  6. NASONEX [Concomitant]

REACTIONS (5)
  - Heart rate increased [Unknown]
  - Aphonia [Recovered/Resolved]
  - Dyspnoea exertional [Unknown]
  - Blood pressure increased [Unknown]
  - Cough [Recovered/Resolved]
